FAERS Safety Report 4760845-5 (Version None)
Quarter: 2005Q3

REPORT INFORMATION
  Report Type: 
  Country: None (occurrence: None)
  Receive Date: 20050902
  Receipt Date: 20050831
  Transmission Date: 20060218
  Serious: Yes (Hospitalization)
  Sender: FDA-Public Use
  Company Number: JP-SANOFI-SYNTHELABO-F01200501759

PATIENT
  Sex: Female

DRUGS (5)
  1. OXALIPLATIN [Suspect]
     Indication: COLON CANCER
     Route: 042
     Dates: start: 20050704, end: 20050704
  2. FLUOROURACIL [Suspect]
     Dosage: 400 MG/M2 IV BOLUS AND 600 MG/M2 IV 22 HOURS CONTINUOUS INFUSION, Q2W
     Route: 042
     Dates: start: 20050704, end: 20050705
  3. CALCIUM LEVOFOLINATE [Suspect]
     Route: 042
     Dates: start: 20050704, end: 20050705
  4. PENTAZOCINE LACTATE [Concomitant]
     Route: 040
     Dates: start: 20050706, end: 20050706
  5. FUTHAN [Concomitant]
     Route: 042
     Dates: start: 20050706, end: 20050708

REACTIONS (2)
  - LARGE INTESTINE PERFORATION [None]
  - METASTASES TO LIVER [None]
